FAERS Safety Report 10775555 (Version 1)
Quarter: 2015Q1

REPORT INFORMATION
  Report Type: Spontaneous
  Country: FR (occurrence: None)
  Receive Date: 20150205
  Receipt Date: 20150205
  Transmission Date: 20150721
  Serious: Yes (Hospitalization, Other)
  Sender: FDA-Public Use
  Company Number: FR2015GSK012400

PATIENT
  Age: 38 Year
  Sex: Female

DRUGS (6)
  1. TARDYFERON [Concomitant]
     Active Substance: FERROUS SULFATE\FOLIC ACID
  2. ATARAX (ATARAX NOS) [Concomitant]
  3. UVEDOSE (COLECALCIFEROL) (100000 IU (INTERNATIONL UNIT, ORAL SOLUTION) (COLECALCIFEROL)) [Concomitant]
     Active Substance: CHOLECALCIFEROL
  4. SUSTIVA [Suspect]
     Active Substance: EFAVIRENZ
     Indication: PRODUCT USED FOR UNKNOWN INDICATION
     Dosage: 600 UNK, UNK, ORAL
     Route: 048
     Dates: start: 20140731
  5. KIVEXA [Suspect]
     Active Substance: ABACAVIR SULFATE\LAMIVUDINE
     Indication: HIV INFECTION
     Route: 048
     Dates: start: 20131225
  6. SALAZOPYRINE [Suspect]
     Active Substance: SULFASALAZINE
     Indication: CONNECTIVE TISSUE INFLAMMATION
     Route: 048
     Dates: start: 20141030, end: 20141204

REACTIONS (1)
  - Drug reaction with eosinophilia and systemic symptoms [None]

NARRATIVE: CASE EVENT DATE: 20141201
